FAERS Safety Report 10263174 (Version 1)
Quarter: 2014Q2

REPORT INFORMATION
  Report Type: Spontaneous
  Country: US (occurrence: US)
  Receive Date: 20140626
  Receipt Date: 20140626
  Transmission Date: 20141212
  Serious: No
  Sender: FDA-Public Use
  Company Number: US-ASTRAZENECA-2014SE23082

PATIENT
  Age: 72 Year
  Sex: Male
  Weight: 101.6 kg

DRUGS (8)
  1. BRILINTA [Suspect]
     Indication: STENT PLACEMENT
     Route: 048
     Dates: start: 20140211
  2. ARMOUR THYROID [Concomitant]
     Indication: THYROID DISORDER
     Route: 048
  3. METFORMIN [Concomitant]
     Indication: DIABETES MELLITUS
     Route: 048
  4. LOSARTAN [Concomitant]
     Indication: THERAPY CHANGE
     Dosage: UNKNOWN DAILY
     Route: 048
     Dates: start: 20140326
  5. CARVEDILOL [Concomitant]
     Indication: CARDIAC DISORDER
     Route: 048
     Dates: start: 20140211
  6. BABY ASPIRIN [Concomitant]
     Indication: DRUG THERAPY ENHANCEMENT
     Route: 048
  7. CYPIONATE [Concomitant]
     Indication: BLOOD TESTOSTERONE ABNORMAL
     Dosage: 1ML
     Route: 050
  8. ALLEGRA [Concomitant]
     Indication: SEASONAL ALLERGY
     Route: 048

REACTIONS (2)
  - Cough [Not Recovered/Not Resolved]
  - Pain [Unknown]
